FAERS Safety Report 7103929-9 (Version None)
Quarter: 2010Q4

REPORT INFORMATION
  Report Type: 
  Country: None (occurrence: None)
  Receive Date: 20101115
  Receipt Date: 20100504
  Transmission Date: 20110411
  Serious: No
  Sender: FDA-Public Use
  Company Number: US-ALLERGAN-1005605US

PATIENT
  Age: 73 Year
  Sex: Female

DRUGS (2)
  1. BOTOXA? [Suspect]
     Indication: HEMIPLEGIA
     Dosage: 400 UNITS, SINGLE
     Route: 030
     Dates: start: 20091215, end: 20091215
  2. BOTOXA? [Suspect]
     Dosage: 400 UNITS, UNK
     Route: 030
     Dates: start: 20100326, end: 20100326

REACTIONS (1)
  - DRUG INEFFECTIVE [None]
